FAERS Safety Report 7584951-5 (Version None)
Quarter: 2011Q2

REPORT INFORMATION
  Report Type: 
  Country: None (occurrence: None)
  Receive Date: 20110630
  Receipt Date: 20110615
  Transmission Date: 20111010
  Serious: Yes (Hospitalization)
  Sender: FDA-Public Use
  Company Number: IT-BAYER-2011-051713

PATIENT
  Age: 63 Year
  Sex: Male

DRUGS (8)
  1. ALTIAZEM [Concomitant]
     Dosage: DAILY DOSE 150 MG
     Route: 048
  2. OMEPRAZOLE [Concomitant]
     Dosage: DAILY DOSE 20 MG
     Route: 048
  3. RAMIPRIL [Concomitant]
     Dosage: DAILY DOSE 5 MG
     Route: 048
  4. MINITRAN [Concomitant]
  5. LASITONE [Concomitant]
     Dosage: DAILY DOSE 1 DF
     Route: 048
  6. ASPIRIN [Suspect]
     Dosage: 100 MG, QD
     Route: 048
     Dates: start: 20080101
  7. LASIX [Concomitant]
     Dosage: DAILY DOSE 50 MG
     Route: 048
  8. SIMVASTATIN [Concomitant]
     Dosage: DAILY DOSE 20 MG
     Route: 048

REACTIONS (1)
  - ANAEMIA [None]
